FAERS Safety Report 6887820-9 (Version None)
Quarter: 2010Q3

REPORT INFORMATION
  Report Type: 
  Country: None (occurrence: None)
  Receive Date: 20100708
  Receipt Date: 20100125
  Transmission Date: 20110219
  Serious: Yes (Other)
  Sender: FDA-Public Use
  Company Number: 2009316473

PATIENT
  Sex: Female
  Weight: 88.4 kg

DRUGS (1)
  1. CHANTIX [Suspect]
     Dosage: 0.5 MG, 2X/DAY, ORAL
     Route: 048
     Dates: start: 20090423, end: 20090426

REACTIONS (5)
  - AGGRESSION [None]
  - DEPRESSION [None]
  - HOSTILITY [None]
  - SUICIDAL IDEATION [None]
  - WEIGHT INCREASED [None]
